FAERS Safety Report 5260808-X (Version None)
Quarter: 2007Q1

REPORT INFORMATION
  Report Type: 
  Country: None (occurrence: None)
  Receive Date: 20070309
  Receipt Date: 20070223
  Transmission Date: 20070707
  Serious: Yes (Death)
  Sender: FDA-Public Use
  Company Number: US-ELI_LILLY_AND_COMPANY-US200702004989

PATIENT
  Sex: Male

DRUGS (2)
  1. PROZAC [Suspect]
     Indication: DEPRESSION
     Route: 048
  2. PAXIL [Concomitant]
     Indication: DEPRESSION
     Dosage: UNK, UNK
     Route: 048

REACTIONS (3)
  - ADVERSE DRUG REACTION [None]
  - ANXIETY [None]
  - DEATH [None]
